FAERS Safety Report 14054378 (Version 1)
Quarter: 2017Q4

REPORT INFORMATION
  Report Type: Spontaneous
  Country: US (occurrence: None)
  Receive Date: 20171006
  Receipt Date: 20171006
  Transmission Date: 20180321
  Serious: Yes (Hospitalization)
  Sender: FDA-Public Use
  Company Number: None

PATIENT
  Age: 48 Year
  Sex: Male

DRUGS (2)
  1. MYCOPHENOLATE [Suspect]
     Active Substance: MYCOPHENOLIC ACID
  2. TACROLIMUS  CAP 5MG [Suspect]
     Active Substance: TACROLIMUS

REACTIONS (2)
  - Crohn^s disease [None]
  - Gastroenteritis [None]

NARRATIVE: CASE EVENT DATE: 20171005
